FAERS Safety Report 9684353 (Version 4)
Quarter: 2014Q3

REPORT INFORMATION
  Report Type: Report from Study
  Country: IT (occurrence: IT)
  Receive Date: 20131112
  Receipt Date: 20140922
  Transmission Date: 20150326
  Serious: Yes (Hospitalization)
  Sender: FDA-Public Use
  Company Number: IT-BRISTOL-MYERS SQUIBB COMPANY-19802115

PATIENT
  Age: 51 Year
  Sex: Female
  Weight: 72.5 kg

DRUGS (5)
  1. ARIPIPRAZOLE [Suspect]
     Active Substance: ARIPIPRAZOLE
     Indication: SCHIZOPHRENIA
     Dosage: SLOW RELEASE TABLET
     Route: 048
     Dates: start: 20131009, end: 20131028
  2. EUTIROX [Concomitant]
     Active Substance: LEVOTHYROXINE SODIUM
     Indication: HYPOTHYROIDISM
     Dosage: TABS?125MG ONCE A WEEK FROM 2010 AND ONGOING
     Dates: start: 2010
  3. AKINETON [Concomitant]
     Active Substance: BIPERIDEN HYDROCHLORIDE
     Indication: SCHIZOPHRENIA
     Dosage: TABS
     Route: 048
     Dates: start: 20130920, end: 20131008
  4. DELORAZEPAM [Concomitant]
     Active Substance: DELORAZEPAM
     Indication: SCHIZOPHRENIA
     Dates: start: 20130920, end: 20131028
  5. RISPERIDONE. [Concomitant]
     Active Substance: RISPERIDONE
     Dosage: CAPS?20SEP12-08OCT13?09OCT13-15OCT13?16OCT13-28OCT13
     Dates: start: 20120920

REACTIONS (1)
  - Schizophrenia [Recovered/Resolved]

NARRATIVE: CASE EVENT DATE: 20131028
